FAERS Safety Report 15596767 (Version 3)
Quarter: 2019Q2

REPORT INFORMATION
  Report Type: Spontaneous
  Country: FR (occurrence: FR)
  Receive Date: 20181108
  Receipt Date: 20190430
  Transmission Date: 20190711
  Serious: Yes (Death, Other)
  Sender: FDA-Public Use
  Company Number: FR-AUROBINDO-AUR-APL-2018-054260

PATIENT

DRUGS (4)
  1. ACETYLCYSTEINE. [Suspect]
     Active Substance: ACETYLCYSTEINE
     Indication: HEPATITIS FULMINANT
     Dosage: UNK
     Route: 065
  2. ACETYLCYSTEINE. [Suspect]
     Active Substance: ACETYLCYSTEINE
     Indication: HEPATITIS
  3. ACICLOVIR TABLETS [Suspect]
     Active Substance: ACYCLOVIR
     Indication: HEPATITIS FULMINANT
     Dosage: UNK
     Route: 065
     Dates: start: 20170918
  4. ADALIMUMAB [Concomitant]
     Active Substance: ADALIMUMAB
     Indication: COLITIS
     Dosage: 40 MG EVERY 2 WEEKS
     Route: 065
     Dates: start: 2014

REACTIONS (5)
  - Drug ineffective [Fatal]
  - Hepatitis fulminant [Fatal]
  - Systemic candida [Fatal]
  - Drug resistance [Fatal]
  - Multiple organ dysfunction syndrome [Fatal]
